FAERS Safety Report 18007126 (Version 1)
Quarter: 2020Q3

REPORT INFORMATION
  Report Type: Spontaneous
  Country: US (occurrence: US)
  Receive Date: 20200710
  Receipt Date: 20200710
  Transmission Date: 20201103
  Serious: No
  Sender: FDA-Public Use
  Company Number: US-ASTRAZENECA-2020SE83736

PATIENT
  Sex: Male
  Weight: 114.3 kg

DRUGS (3)
  1. BYDUREON BCISE [Suspect]
     Active Substance: EXENATIDE
     Indication: TYPE 2 DIABETES MELLITUS
     Route: 065
  2. GLIPIZIDE. [Concomitant]
     Active Substance: GLIPIZIDE
  3. JANUVIA [Concomitant]
     Active Substance: SITAGLIPTIN PHOSPHATE

REACTIONS (9)
  - Dizziness [Unknown]
  - Pain in extremity [Unknown]
  - Weight increased [Unknown]
  - Dyspnoea [Unknown]
  - Hypoglycaemia [Unknown]
  - Nervousness [Unknown]
  - Hunger [Unknown]
  - Injection site extravasation [Unknown]
  - Hypophagia [Unknown]
